FAERS Safety Report 8999219 (Version 2)
Quarter: 2013Q3

REPORT INFORMATION
  Report Type: Spontaneous
  Country: CH (occurrence: CH)
  Receive Date: 20130103
  Receipt Date: 20130906
  Transmission Date: 20140515
  Serious: Yes (Other)
  Sender: FDA-Public Use
  Company Number: PHHY2012CH121744

PATIENT
  Age: 39 Year
  Sex: Female

DRUGS (2)
  1. SANDIMMUNE NEORAL [Suspect]
     Dosage: 4.48 MG/KG, 0.6 MULIPLT TO MAXIMUM LICENCED DOSE
  2. RITONAVIR [Interacting]

REACTIONS (5)
  - Suicidal ideation [Unknown]
  - Intentional overdose [Unknown]
  - Drug interaction [Unknown]
  - Headache [Unknown]
  - Immunosuppressant drug level increased [Unknown]
